FAERS Safety Report 11124211 (Version 2)
Quarter: 2015Q2

REPORT INFORMATION
  Report Type: Spontaneous
  Country: PL (occurrence: PL)
  Receive Date: 20150520
  Receipt Date: 20150612
  Transmission Date: 20150821
  Serious: Yes (Other)
  Sender: FDA-Public Use
  Company Number: PL-ROCHE-1578652

PATIENT
  Sex: Female
  Weight: 90 kg

DRUGS (6)
  1. CARBOPLATIN. [Concomitant]
     Active Substance: CARBOPLATIN
     Indication: BREAST CANCER
     Route: 065
     Dates: start: 20150401
  2. TRASTUZUMAB [Suspect]
     Active Substance: TRASTUZUMAB
     Indication: BREAST CANCER
     Route: 065
     Dates: start: 20120413, end: 20130411
  3. TRASTUZUMAB [Suspect]
     Active Substance: TRASTUZUMAB
     Route: 065
     Dates: start: 20150123
  4. VINORELBINE [Concomitant]
     Active Substance: VINORELBINE\VINORELBINE TARTRATE
     Indication: BREAST CANCER
     Route: 065
     Dates: start: 20150123, end: 20150316
  5. PACLITAXEL. [Concomitant]
     Active Substance: PACLITAXEL
     Route: 065
     Dates: start: 20150401
  6. PACLITAXEL. [Concomitant]
     Active Substance: PACLITAXEL
     Indication: BREAST CANCER
     Route: 065
     Dates: start: 20130208, end: 20130425

REACTIONS (4)
  - Pericardial effusion [Unknown]
  - Metastases to lymph nodes [Unknown]
  - Neoplasm [Unknown]
  - Cardiac tamponade [Unknown]
